FAERS Safety Report 5535263-2 (Version None)
Quarter: 2007Q4

REPORT INFORMATION
  Report Type: 
  Country: None (occurrence: None)
  Receive Date: 20071206
  Receipt Date: 20071129
  Transmission Date: 20080405
  Serious: Yes (Other)
  Sender: FDA-Public Use
  Company Number: US-KINGPHARMUSA00001-K200701246

PATIENT

DRUGS (4)
  1. ALTACE [Suspect]
     Indication: HYPERTENSION
     Dosage: 2.5 MG, QD
     Route: 048
  2. EPANUTIN /00017402/ [Concomitant]
  3. TEGRETOL [Concomitant]
  4. LIPITOR [Concomitant]

REACTIONS (1)
  - SKIN EXFOLIATION [None]
